FAERS Safety Report 13818727 (Version 1)
Quarter: 2017Q3

REPORT INFORMATION
  Report Type: Report from Study
  Country: US (occurrence: US)
  Receive Date: 20170731
  Receipt Date: 20170731
  Transmission Date: 20171127
  Serious: No
  Sender: FDA-Public Use
  Company Number: US-EXELIXIS-CABO-17008419

PATIENT
  Sex: Male

DRUGS (5)
  1. RESTORIL [Concomitant]
     Active Substance: TEMAZEPAM
  2. LOVENOX [Concomitant]
     Active Substance: ENOXAPARIN SODIUM
  3. CABOMETYX [Suspect]
     Active Substance: CABOZANTINIB S-MALATE
     Indication: RENAL CANCER
     Dosage: 60 MG, QD
     Route: 048
     Dates: start: 20170222
  4. ZOFRAN [Concomitant]
     Active Substance: ONDANSETRON HYDROCHLORIDE
  5. CABOMETYX [Suspect]
     Active Substance: CABOZANTINIB S-MALATE
     Indication: BRAIN NEOPLASM MALIGNANT

REACTIONS (3)
  - Rash [Unknown]
  - Pruritus [Not Recovered/Not Resolved]
  - Pleural effusion [Unknown]
